FAERS Safety Report 18680764 (Version 1)
Quarter: 2020Q4

REPORT INFORMATION
  Report Type: Spontaneous
  Country: CA (occurrence: CA)
  Receive Date: 20201229
  Receipt Date: 20201229
  Transmission Date: 20210114
  Serious: Yes (Hospitalization, Other)
  Sender: FDA-Public Use
  Company Number: CA-PFIZER INC-2020453508

PATIENT
  Age: 31 Year
  Sex: Female
  Weight: 50 kg

DRUGS (8)
  1. RUXIENCE [Suspect]
     Active Substance: RITUXIMAB-PVVR
     Indication: RHEUMATOID ARTHRITIS
     Dosage: UNK
     Route: 042
     Dates: start: 202004
  2. TACROLIMUS. [Concomitant]
     Active Substance: TACROLIMUS
     Indication: RHEUMATOID ARTHRITIS
     Dosage: 2 MG, 2X/DAY
     Route: 048
     Dates: start: 2016
  3. RUXIENCE [Suspect]
     Active Substance: RITUXIMAB-PVVR
     Dosage: 1000 MG, ON DAY 1 AND ON DAY 15
     Route: 042
     Dates: start: 20201103, end: 20201103
  4. RUXIENCE [Suspect]
     Active Substance: RITUXIMAB-PVVR
     Indication: SJOGREN^S SYNDROME
     Dosage: UNK (2RD INFUSION)
     Route: 042
     Dates: start: 20200418
  5. PREDNISONE. [Concomitant]
     Active Substance: PREDNISONE
     Dosage: UNK, 2X/DAY
  6. RUXIENCE [Suspect]
     Active Substance: RITUXIMAB-PVVR
     Indication: STILL^S DISEASE
     Dosage: UNK
     Route: 042
     Dates: end: 202010
  7. CELEBREX [Concomitant]
     Active Substance: CELECOXIB
     Dosage: 200 MG, 2X/DAY
  8. TACROLIMUS. [Concomitant]
     Active Substance: TACROLIMUS
     Indication: SJOGREN^S SYNDROME

REACTIONS (7)
  - Pharyngeal swelling [Unknown]
  - Arthritis [Unknown]
  - Serum sickness [Recovered/Resolved]
  - Obstructive airways disorder [Unknown]
  - Hypersensitivity [Unknown]
  - C-reactive protein increased [Unknown]
  - Eye disorder [Unknown]

NARRATIVE: CASE EVENT DATE: 202010
